FAERS Safety Report 5797262-5 (Version None)
Quarter: 2008Q3

REPORT INFORMATION
  Report Type: 
  Country: None (occurrence: None)
  Receive Date: 20080701
  Receipt Date: 20080623
  Transmission Date: 20090109
  Serious: Yes (Other)
  Sender: FDA-Public Use
  Company Number: US-PFIZER INC-2006125697

PATIENT
  Sex: Female
  Weight: 59.9 kg

DRUGS (7)
  1. LIPITOR [Suspect]
     Indication: BLOOD CHOLESTEROL INCREASED
     Route: 048
  2. ZOCOR [Suspect]
  3. VYTORIN [Suspect]
  4. ZOLOFT [Concomitant]
  5. LITHOBID [Concomitant]
  6. ASPIRIN [Concomitant]
  7. TOPROL-XL [Concomitant]

REACTIONS (5)
  - GAIT DISTURBANCE [None]
  - HEPATIC ENZYME INCREASED [None]
  - HEPATIC FUNCTION ABNORMAL [None]
  - HYPERTENSION [None]
  - MYALGIA [None]
